FAERS Safety Report 7117183-5 (Version None)
Quarter: 2010Q4

REPORT INFORMATION
  Report Type: 
  Country: None (occurrence: None)
  Receive Date: 20101122
  Receipt Date: 20101115
  Transmission Date: 20110411
  Serious: Yes (Hospitalization, Other)
  Sender: FDA-Public Use
  Company Number: CA-ABBOTT-10P-028-0685477-00

PATIENT
  Sex: Female
  Weight: 99.88 kg

DRUGS (1)
  1. HUMIRA [Suspect]
     Indication: RHEUMATOID ARTHRITIS
     Route: 058
     Dates: start: 20071025, end: 20100101

REACTIONS (7)
  - APPENDICECTOMY [None]
  - CEREBROVASCULAR ACCIDENT [None]
  - COLITIS [None]
  - COLON ADENOMA [None]
  - COLON CANCER [None]
  - RETINAL ARTERY EMBOLISM [None]
  - VISUAL ACUITY REDUCED [None]
